FAERS Safety Report 24924297 (Version 2)
Quarter: 2025Q1

REPORT INFORMATION
  Report Type: Spontaneous
  Country: US (occurrence: US)
  Receive Date: 20250204
  Receipt Date: 20250205
  Transmission Date: 20250409
  Serious: No
  Sender: PFIZER
  Company Number: US-PFIZER INC-202500019358

PATIENT
  Age: 56 Year
  Sex: Female
  Weight: 65.77 kg

DRUGS (4)
  1. ESTRING [Suspect]
     Active Substance: ESTRADIOL
     Dosage: UNK, 2X/WEEK
     Route: 061
  2. ESTRING [Suspect]
     Active Substance: ESTRADIOL
     Dosage: UNK, 2X/WEEK
     Route: 061
  3. ESTRING [Suspect]
     Active Substance: ESTRADIOL
     Dosage: UNK, 2X/WEEK
     Route: 061
     Dates: start: 20250123
  4. ESTRADIOL [Suspect]
     Active Substance: ESTRADIOL
     Dosage: UNK UNK, 2X/WEEK
     Dates: start: 20250126

REACTIONS (3)
  - Agitation [Unknown]
  - Vulvovaginal burning sensation [Recovering/Resolving]
  - Vulvovaginal pain [Recovering/Resolving]

NARRATIVE: CASE EVENT DATE: 20250127
